FAERS Safety Report 9830757 (Version 1)
Quarter: 2014Q1

REPORT INFORMATION
  Report Type: Spontaneous
  Country: US (occurrence: US)
  Receive Date: 20140120
  Receipt Date: 20140120
  Transmission Date: 20141002
  Serious: Yes (Hospitalization)
  Sender: FDA-Public Use
  Company Number: US-ELI_LILLY_AND_COMPANY-US201401006849

PATIENT
  Age: 35 Year
  Sex: Female

DRUGS (13)
  1. PROZAC [Suspect]
     Indication: DEPRESSION
     Dosage: 40 MG, EACH MORNING
     Route: 065
  2. PROZAC [Suspect]
     Dosage: 20 MG, EACH EVENING
     Route: 065
  3. PROZAC [Suspect]
     Dosage: 20 MG, QD
     Route: 065
  4. TRAZODONE [Concomitant]
     Dosage: 150 MG, EACH EVENING
     Route: 065
  5. TRAZODONE [Concomitant]
     Dosage: 75 MG, UNKNOWN
     Route: 065
  6. ALPRAZOLAM [Concomitant]
     Dosage: 1 MG, QD
     Route: 065
  7. MAZINDOL [Concomitant]
     Dosage: UNK, UNKNOWN
     Route: 065
  8. BUMETANIDE [Concomitant]
     Dosage: 1 MG, QD
     Route: 065
  9. LEVOTHYROXINE SODIUM [Concomitant]
     Dosage: 0.15 MG, QD
     Route: 065
  10. CIMETIDINE [Concomitant]
     Dosage: 300 MG, QD
     Route: 065
  11. IBUPROFEN [Concomitant]
     Dosage: UNK, UNKNOWN
     Route: 065
  12. FIORINAL [Concomitant]
     Dosage: UNK, UNKNOWN
     Route: 065
  13. ETHANOL [Concomitant]

REACTIONS (11)
  - Drug abuse [Unknown]
  - Drug dependence [Unknown]
  - Energy increased [Unknown]
  - Logorrhoea [Unknown]
  - Hypoaesthesia [Unknown]
  - Feeling of relaxation [Unknown]
  - Weight increased [Unknown]
  - Feeling jittery [Unknown]
  - Elevated mood [Unknown]
  - Fear [Unknown]
  - Intentional drug misuse [Unknown]
